FAERS Safety Report 13568983 (Version 1)
Quarter: 2017Q2

REPORT INFORMATION
  Report Type: Report from Study
  Country: US (occurrence: US)
  Receive Date: 20170522
  Receipt Date: 20170522
  Transmission Date: 20170830
  Serious: No
  Sender: FDA-Public Use
  Company Number: US-VANDA PHARMACEUTICALS, INC-2017ILOUS001582

PATIENT
  Sex: Female
  Weight: 72.56 kg

DRUGS (4)
  1. FANAPT [Suspect]
     Active Substance: ILOPERIDONE
     Dosage: 1 MG, QHS(ONCE NIGHTLY)
     Route: 048
     Dates: start: 2017, end: 2017
  2. FANAPT [Suspect]
     Active Substance: ILOPERIDONE
     Dosage: 2 MG, QHS(ONCE NIGHTLY)
     Route: 048
     Dates: start: 2017
  3. FANAPT [Suspect]
     Active Substance: ILOPERIDONE
     Dosage: 6 MG, QHS(ONCE NIGHTLY)
     Route: 048
     Dates: start: 201701, end: 2017
  4. FANAPT [Suspect]
     Active Substance: ILOPERIDONE
     Indication: DEPRESSION
     Dosage: 1 MG, QHS(ONCE NIGHTLY)
     Route: 048
     Dates: start: 201612, end: 201701

REACTIONS (7)
  - Dyspnoea [Unknown]
  - Peripheral swelling [Recovering/Resolving]
  - Nasal congestion [Unknown]
  - Swelling face [Recovering/Resolving]
  - Hypotension [Recovering/Resolving]
  - Wrong technique in product usage process [Unknown]
  - Heart rate increased [Recovering/Resolving]
